FAERS Safety Report 5863393-4 (Version None)
Quarter: 2008Q3

REPORT INFORMATION
  Report Type: 
  Country: None (occurrence: None)
  Receive Date: 20080828
  Receipt Date: 20080821
  Transmission Date: 20090109
  Serious: Yes (Other)
  Sender: FDA-Public Use
  Company Number: PHBS2008LT05514

PATIENT
  Age: 15 Year
  Sex: Female

DRUGS (5)
  1. CYCLOSPORINE [Suspect]
     Indication: NEPHROTIC SYNDROME
     Dosage: 250 MG/ DAY
     Route: 048
  2. PREDNISONE TAB [Suspect]
     Indication: NEPHROTIC SYNDROME
     Dosage: 80 MG/ DAY
  3. ALBUMIN (HUMAN) [Concomitant]
  4. DIURETICS [Concomitant]
  5. ENALAPRIL MALEATE [Concomitant]
     Dosage: 10 MG/ DAY

REACTIONS (7)
  - BLOOD ALBUMIN DECREASED [None]
  - CONJUNCTIVAL OEDEMA [None]
  - CORNEAL DISORDER [None]
  - FLUID RETENTION [None]
  - HERPES SIMPLEX SEROLOGY POSITIVE [None]
  - HYPOPROTEINAEMIA [None]
  - RASH VESICULAR [None]
